FAERS Safety Report 9237018 (Version 4)
Quarter: 2013Q2

REPORT INFORMATION
  Report Type: Spontaneous
  Country: AU (occurrence: AU)
  Receive Date: 20130417
  Receipt Date: 20130610
  Transmission Date: 20140414
  Serious: Yes (Other)
  Sender: FDA-Public Use
  Company Number: AU-009507513-1304AUS008017

PATIENT
  Age: 80 Year
  Sex: Female

DRUGS (3)
  1. AVANZA [Suspect]
     Dosage: 15 MG, HS (1/2 NIGHT (15 MG))
     Route: 048
     Dates: start: 2009, end: 2009
  2. CHLORSIG [Concomitant]
     Dosage: UNK
     Dates: start: 201210
  3. FML [Concomitant]
     Dosage: UNK
     Dates: start: 201303

REACTIONS (1)
  - Convulsion [Recovered/Resolved]
